FAERS Safety Report 6339206-3 (Version None)
Quarter: 2009Q3

REPORT INFORMATION
  Report Type: 
  Country: None (occurrence: None)
  Receive Date: 20090903
  Receipt Date: 20090824
  Transmission Date: 20100115
  Serious: Yes (Hospitalization)
  Sender: FDA-Public Use
  Company Number: US-AVENTIS-200919656GDDC

PATIENT
  Age: 68 Year
  Sex: Male
  Weight: 96.9 kg

DRUGS (3)
  1. TAXOTERE [Suspect]
     Indication: SQUAMOUS CELL CARCINOMA OF SKIN
     Route: 042
  2. CISPLATIN [Suspect]
     Indication: SQUAMOUS CELL CARCINOMA OF SKIN
     Route: 042
  3. 5-FU                               /00098801/ [Suspect]
     Indication: SQUAMOUS CELL CARCINOMA OF SKIN
     Route: 042
     Dates: start: 20090404, end: 20090407

REACTIONS (1)
  - CATHETER RELATED COMPLICATION [None]
